FAERS Safety Report 24629768 (Version 1)
Quarter: 2024Q4

REPORT INFORMATION
  Report Type: Spontaneous
  Country: IL (occurrence: IL)
  Receive Date: 20241118
  Receipt Date: 20241118
  Transmission Date: 20250114
  Serious: Yes (Other)
  Sender: AMGEN
  Company Number: IL-AMGEN-ISRSP2024225662

PATIENT

DRUGS (6)
  1. BEVACIZUMAB [Suspect]
     Active Substance: BEVACIZUMAB
     Indication: Non-small cell lung cancer
     Dosage: UNK
     Route: 065
  2. CARBOPLATIN [Concomitant]
     Active Substance: CARBOPLATIN
  3. GEMCITABINE [Concomitant]
     Active Substance: GEMCITABINE
  4. PEMETREXED [Concomitant]
     Active Substance: PEMETREXED
  5. IRINOTECAN [Concomitant]
     Active Substance: IRINOTECAN
  6. PEMBROLIZUMAB [Concomitant]
     Active Substance: PEMBROLIZUMAB
     Dosage: 200 MILLIGRAM, Q3WK

REACTIONS (7)
  - Lung adenocarcinoma [Unknown]
  - Eosinophilia [Recovered/Resolved]
  - Fatigue [Unknown]
  - Decreased appetite [Unknown]
  - Abdominal discomfort [Recovered/Resolved]
  - Diarrhoea [Unknown]
  - Pruritus [Recovered/Resolved]
